FAERS Safety Report 14299970 (Version 2)
Quarter: 2018Q2

REPORT INFORMATION
  Report Type: Spontaneous
  Country: US (occurrence: US)
  Receive Date: 20171219
  Receipt Date: 20180608
  Transmission Date: 20180711
  Serious: No
  Sender: FDA-Public Use
  Company Number: US-ASTRAZENECA-2017SF26067

PATIENT
  Sex: Female
  Weight: 103 kg

DRUGS (6)
  1. BYDUREON [Suspect]
     Active Substance: EXENATIDE
     Indication: TYPE 2 DIABETES MELLITUS
     Route: 058
     Dates: start: 20180510
  2. BYETTA [Suspect]
     Active Substance: EXENATIDE
     Indication: TYPE 2 DIABETES MELLITUS
     Route: 058
  3. BYETTA [Suspect]
     Active Substance: EXENATIDE
     Indication: TYPE 2 DIABETES MELLITUS
     Route: 058
     Dates: start: 20171207, end: 20180509
  4. LANTUS [Concomitant]
     Active Substance: INSULIN GLARGINE
  5. STAYFREE [Concomitant]
     Route: 031
  6. BYETTA [Suspect]
     Active Substance: EXENATIDE
     Indication: TYPE 2 DIABETES MELLITUS
     Route: 058
     Dates: start: 20171026, end: 20171126

REACTIONS (14)
  - Injection site haemorrhage [Unknown]
  - Injection site pain [Unknown]
  - Pain [Unknown]
  - Off label use [Unknown]
  - Product use issue [Unknown]
  - Eye disorder [Unknown]
  - Blood glucose increased [Unknown]
  - Fatigue [Unknown]
  - Injection site extravasation [Unknown]
  - Stress [Unknown]
  - Malaise [Unknown]
  - Confusional state [Unknown]
  - Diplopia [Unknown]
  - Visual impairment [Unknown]

NARRATIVE: CASE EVENT DATE: 20171026
